FAERS Safety Report 21302136 (Version 1)
Quarter: 2022Q3

REPORT INFORMATION
  Report Type: Spontaneous
  Country: IL (occurrence: IL)
  Receive Date: 20220907
  Receipt Date: 20220907
  Transmission Date: 20221026
  Serious: Yes (Hospitalization, Other)
  Sender: FDA-Public Use
  Company Number: IL-BoehringerIngelheim-2022-BI-190863

PATIENT
  Age: 65 Year
  Sex: Female

DRUGS (1)
  1. JARDIANCE [Suspect]
     Active Substance: EMPAGLIFLOZIN
     Indication: Product used for unknown indication
     Dates: start: 202106

REACTIONS (3)
  - Pyrexia [Unknown]
  - Diabetic ketoacidosis [Unknown]
  - Infection [Unknown]

NARRATIVE: CASE EVENT DATE: 20220601
